FAERS Safety Report 10083276 (Version 1)
Quarter: 2014Q2

REPORT INFORMATION
  Report Type: Report from Study
  Country: US (occurrence: US)
  Receive Date: 20140417
  Receipt Date: 20140417
  Transmission Date: 20141212
  Serious: Yes (Hospitalization)
  Sender: FDA-Public Use
  Company Number: US-ROCHE-1382142

PATIENT
  Sex: Male

DRUGS (10)
  1. NUTROPIN [Suspect]
     Indication: RENAL FAILURE CHRONIC
     Route: 058
     Dates: start: 201309
  2. POLYETHYLENE GLYCOL [Concomitant]
     Route: 048
  3. AMOXICILLIN [Concomitant]
     Route: 048
  4. CALCITRIOL [Concomitant]
     Route: 065
  5. CALCIUM CARBONATE [Concomitant]
     Route: 065
  6. CHOLECALCIFEROL [Concomitant]
     Dosage: 2000 UNITS DAILY
     Route: 048
  7. EPOETIN ALFA [Concomitant]
     Dosage: 6000 UNITS
     Route: 058
  8. FERROUS SULFATE [Concomitant]
     Route: 048
  9. GENTAMICIN [Concomitant]
     Route: 061
  10. NYSTATIN [Concomitant]
     Route: 048

REACTIONS (9)
  - Hypotension [Recovering/Resolving]
  - Dizziness [Unknown]
  - Urine output increased [Unknown]
  - Pruritus [Unknown]
  - Sleep apnoea syndrome [Unknown]
  - Malnutrition [Unknown]
  - Anaemia [Unknown]
  - Snoring [Unknown]
  - Hungry bone syndrome [Unknown]
